FAERS Safety Report 13592708 (Version 2)
Quarter: 2017Q3

REPORT INFORMATION
  Report Type: Spontaneous
  Country: DE (occurrence: DE)
  Receive Date: 20170530
  Receipt Date: 20170808
  Transmission Date: 20171127
  Serious: Yes (Hospitalization)
  Sender: FDA-Public Use
  Company Number: DE-SA-2017SA093790

PATIENT
  Age: 34 Year
  Sex: Female
  Weight: 58 kg

DRUGS (16)
  1. VITAMIN C [Concomitant]
     Active Substance: ASCORBIC ACID
     Indication: BLADDER DISORDER
     Route: 048
     Dates: start: 201703
  2. ACICLOVIR [Concomitant]
     Active Substance: ACYCLOVIR
     Route: 048
     Dates: start: 20170614
  3. SPASMEX [Concomitant]
     Active Substance: TROSPIUM CHLORIDE
     Indication: BLADDER DISORDER
     Route: 048
     Dates: start: 201703
  4. CIPROBAY [Concomitant]
     Active Substance: CIPROFLOXACIN
     Indication: URINARY TRACT INFECTION
     Dates: start: 20170418
  5. MIRTAZAPINE. [Concomitant]
     Active Substance: MIRTAZAPINE
     Indication: DEPRESSION
     Route: 048
  6. TRAMADOL. [Concomitant]
     Active Substance: TRAMADOL
  7. LYRICA [Suspect]
     Active Substance: PREGABALIN
     Indication: ANXIETY DISORDER
     Dosage: FREQUENCY:1-0-1
     Route: 048
     Dates: start: 20170425, end: 20170510
  8. VITAMIN D [Concomitant]
     Active Substance: CHOLECALCIFEROL
     Indication: VITAMIN D DEFICIENCY
     Route: 048
     Dates: start: 201610
  9. INSULIN [Concomitant]
     Active Substance: INSULIN NOS
     Route: 065
  10. VIGANTOLETTEN [Concomitant]
     Active Substance: CHOLECALCIFEROL
     Route: 065
  11. COTRIM FORTE [Concomitant]
     Active Substance: SULFAMETHOXAZOLE\TRIMETHOPRIM
     Route: 065
     Dates: start: 201705
  12. CORTISONE [Concomitant]
     Active Substance: CORTISONE\HYDROCORTISONE
     Dates: start: 201702
  13. COPAXONE [Concomitant]
     Active Substance: GLATIRAMER ACETATE
     Dates: start: 200812
  14. LEMTRADA [Suspect]
     Active Substance: ALEMTUZUMAB
     Indication: MULTIPLE SCLEROSIS
     Dosage: 5 INFUSIONS
     Route: 041
     Dates: start: 20170418, end: 20170423
  15. LEMTRADA [Suspect]
     Active Substance: ALEMTUZUMAB
     Indication: MULTIPLE SCLEROSIS
     Dosage: 5 INFUSIONS
     Route: 041
     Dates: start: 20170418, end: 20170423
  16. IBUPROFEN. [Concomitant]
     Active Substance: IBUPROFEN
     Route: 065

REACTIONS (15)
  - Leukopenia [Recovering/Resolving]
  - Pancytopenia [Recovering/Resolving]
  - Insomnia [Unknown]
  - Headache [Not Recovered/Not Resolved]
  - Urinary incontinence [Unknown]
  - Nausea [Unknown]
  - Weight decreased [Unknown]
  - Skin burning sensation [Unknown]
  - Hypoacusis [Unknown]
  - Anxiety disorder [Unknown]
  - Thrombocytopenia [Recovering/Resolving]
  - Paraesthesia [Unknown]
  - Dizziness [Unknown]
  - Sensory disturbance [Unknown]
  - Decreased appetite [Unknown]

NARRATIVE: CASE EVENT DATE: 2017
